FAERS Safety Report 8860030 (Version 4)
Quarter: 2013Q3

REPORT INFORMATION
  Report Type: Spontaneous
  Country: US (occurrence: US)
  Receive Date: 20121025
  Receipt Date: 20130902
  Transmission Date: 20140515
  Serious: Yes (Hospitalization)
  Sender: FDA-Public Use
  Company Number: US-BIOGENIDEC-2012BI046517

PATIENT
  Age: 61 Year
  Sex: Female
  Weight: 107 kg

DRUGS (7)
  1. AVONEX [Suspect]
     Indication: MULTIPLE SCLEROSIS
     Route: 030
     Dates: start: 20010501
  2. AMLODIPINE [Concomitant]
  3. AMPYRA [Concomitant]
  4. DIOVAN HCT [Concomitant]
  5. FISH OIL [Concomitant]
  6. IBUPROFEN [Concomitant]
  7. METOPROLOL TARTRATE [Concomitant]

REACTIONS (17)
  - Cholecystectomy [Unknown]
  - Appendicectomy [Unknown]
  - Cyst [Not Recovered/Not Resolved]
  - Pulmonary mass [Unknown]
  - Pancreatic cyst [Unknown]
  - Intestinal cyst [Unknown]
  - Hypertension [Unknown]
  - Psoriasis [Unknown]
  - Blood urea increased [Unknown]
  - Gastric cyst [Not Recovered/Not Resolved]
  - Multiple sclerosis [Not Recovered/Not Resolved]
  - Vitamin D deficiency [Unknown]
  - Adverse event [Not Recovered/Not Resolved]
  - Nasopharyngitis [Not Recovered/Not Resolved]
  - Chills [Not Recovered/Not Resolved]
  - Pyrexia [Not Recovered/Not Resolved]
  - Invasive ductal breast carcinoma [Recovered/Resolved]
